FAERS Safety Report 8979420 (Version 3)
Quarter: 2014Q3

REPORT INFORMATION
  Report Type: Spontaneous
  Country: US (occurrence: US)
  Receive Date: 20121221
  Receipt Date: 20140902
  Transmission Date: 20150326
  Serious: Yes (Disabling)
  Sender: FDA-Public Use
  Company Number: US-009507513-2012SP000445

PATIENT
  Sex: Female
  Weight: 68.27 kg

DRUGS (1)
  1. NUVARING [Suspect]
     Active Substance: ETHINYL ESTRADIOL\ETONOGESTREL
     Indication: CONTRACEPTION
     Dosage: UNK
     Route: 067
     Dates: start: 200901, end: 201001

REACTIONS (6)
  - Anxiety [Unknown]
  - Post thrombotic syndrome [Unknown]
  - Palpitations [Unknown]
  - Deep vein thrombosis [Unknown]
  - Phlebitis [Unknown]
  - Deep vein thrombosis [Unknown]

NARRATIVE: CASE EVENT DATE: 2010
